FAERS Safety Report 9462540 (Version 2)
Quarter: 2013Q4

REPORT INFORMATION
  Report Type: Report from Study
  Country: JP (occurrence: JP)
  Receive Date: 20130816
  Receipt Date: 20131023
  Transmission Date: 20140711
  Serious: Yes (Hospitalization, Other)
  Sender: FDA-Public Use
  Company Number: JP-AMGEN-JPNCT2013057717

PATIENT
  Age: 60 Year
  Sex: Female
  Weight: 55 kg

DRUGS (37)
  1. ROMIPLATE [Suspect]
     Indication: IMMUNE THROMBOCYTOPENIC PURPURA
     Dosage: 1 MUG/KG, QWK
     Route: 058
     Dates: start: 20120308
  2. PREDONINE [Concomitant]
     Indication: IMMUNE THROMBOCYTOPENIC PURPURA
     Dosage: 5 MG, UNK
     Route: 048
     Dates: start: 20120223
  3. PREDONINE [Concomitant]
     Dosage: 5 MG, UNK
     Route: 048
     Dates: start: 20120223, end: 20120516
  4. PREDONINE [Concomitant]
     Dosage: 5 MG, UNK
     Route: 048
     Dates: start: 20120806
  5. REVOLADE [Concomitant]
     Indication: IMMUNE THROMBOCYTOPENIC PURPURA
     Dosage: 50 MG, UNK
     Route: 048
     Dates: start: 20110616, end: 20120307
  6. MUCOSTA [Concomitant]
     Indication: GASTRITIS
     Dosage: UNK
     Route: 048
  7. MOHRUS [Concomitant]
     Indication: MYALGIA
     Dosage: UNK
     Route: 061
  8. ALFAROL [Concomitant]
     Indication: OSTEOPOROSIS
     Dosage: UNK
     Route: 048
  9. CINAL [Concomitant]
     Indication: VITAMIN C DEFICIENCY
     Dosage: UNK
     Route: 048
  10. MYSLEE [Concomitant]
     Indication: INSOMNIA
     Dosage: UNK
     Route: 048
  11. ALOSENN [Concomitant]
     Indication: CONSTIPATION
     Dosage: UNK
     Route: 048
  12. ALLEGRA [Concomitant]
     Indication: RHINITIS ALLERGIC
     Dosage: UNK
     Route: 048
  13. NITROPEN [Concomitant]
     Indication: ANGINA PECTORIS
     Dosage: UNK
     Route: 048
  14. BONALON [Concomitant]
     Indication: OSTEOPOROSIS
     Dosage: UNK
     Route: 048
  15. CHAMPIX [Concomitant]
     Indication: NICOTINE DEPENDENCE
     Dosage: UNK
     Route: 048
  16. FERROMIA [Concomitant]
     Indication: IRON DEFICIENCY ANAEMIA
     Dosage: UNK
     Route: 048
  17. POLARAMINE [Concomitant]
     Indication: RHINITIS ALLERGIC
     Dosage: UNK
     Route: 065
  18. CRAVIT [Concomitant]
     Indication: GASTROENTERITIS BACTERIAL
     Dosage: UNK
     Route: 065
  19. BIOFERMIN [Concomitant]
     Indication: GASTROENTERITIS BACTERIAL
     Dosage: UNK
     Route: 048
  20. BUSCOPAN [Concomitant]
     Indication: BACK PAIN
     Dosage: UNK
     Route: 065
  21. MAGCOROL [Concomitant]
     Indication: PREOPERATIVE CARE
     Dosage: UNK
     Route: 048
  22. LENDORMIN [Concomitant]
     Indication: PREOPERATIVE CARE
     Dosage: UNK
     Route: 048
  23. PURSENNID [Concomitant]
     Indication: PREOPERATIVE CARE
     Dosage: UNK
     Route: 048
  24. LOXONIN [Concomitant]
     Indication: POSTOPERATIVE CARE
     Dosage: UNK
     Route: 065
  25. SELBEX [Concomitant]
     Indication: POSTOPERATIVE CARE
     Dosage: UNK
     Route: 048
  26. GASTER [Concomitant]
     Indication: POSTOPERATIVE CARE
     Dosage: UNK
     Route: 065
  27. PENTCILLIN [Concomitant]
     Indication: POSTOPERATIVE CARE
     Dosage: UNK
     Route: 065
  28. PENTAGIN [Concomitant]
     Indication: POSTOPERATIVE CARE
     Dosage: UNK
     Route: 065
  29. PRIMPERAN [Concomitant]
     Indication: POSTOPERATIVE CARE
     Dosage: UNK
     Route: 065
  30. ATARAX-P [Concomitant]
     Indication: POSTOPERATIVE CARE
     Dosage: UNK
     Route: 065
  31. SERENACE [Concomitant]
     Indication: POSTOPERATIVE CARE
     Dosage: UNK
     Route: 065
  32. ROPION [Concomitant]
     Indication: POSTOPERATIVE CARE
     Dosage: UNK
     Route: 065
  33. BAYASPIRIN [Concomitant]
     Indication: ANGINA PECTORIS
     Dosage: UNK
     Route: 048
  34. PREDNISOLONE [Concomitant]
     Indication: IMMUNE THROMBOCYTOPENIC PURPURA
     Dosage: 4 MG, UNK
     Route: 048
     Dates: start: 20120517, end: 20120725
  35. PREDNISOLONE [Concomitant]
     Dosage: 2 MG, UNK
     Route: 048
     Dates: start: 20120726, end: 20120805
  36. MOHRUS TAPE [Concomitant]
     Indication: MYALGIA
     Dosage: UNK
     Route: 062
  37. BONALON 35MG [Concomitant]
     Indication: OSTEOPOROSIS
     Dosage: UNK
     Route: 048

REACTIONS (6)
  - Platelet count decreased [Recovered/Resolved]
  - Gastroenteritis bacterial [Recovered/Resolved]
  - Petechiae [Recovered/Resolved]
  - Nasopharyngitis [Recovered/Resolved]
  - Asthma [Recovered/Resolved]
  - Nasopharyngitis [Recovered/Resolved]
